FAERS Safety Report 5067743-0 (Version None)
Quarter: 2006Q3

REPORT INFORMATION
  Report Type: 
  Country: None (occurrence: None)
  Receive Date: 20060731
  Receipt Date: 20060717
  Transmission Date: 20061208
  Serious: Yes (Other)
  Sender: FDA-Public Use
  Company Number: US017939

PATIENT
  Age: 46 Year
  Sex: Female
  Weight: 83.4619 kg

DRUGS (6)
  1. GABITRIL [Suspect]
     Indication: FIBROMYALGIA
     Dosage: 4 MG ORAL
     Route: 048
     Dates: start: 20050613
  2. GABITRIL [Suspect]
     Indication: PAIN
     Dosage: 4 MG ORAL
     Route: 048
     Dates: start: 20050613
  3. GABITRIL [Suspect]
     Indication: FIBROMYALGIA
     Dosage: 24 MG QD ORAL
     Route: 048
     Dates: start: 20060301, end: 20060711
  4. GABITRIL [Suspect]
     Indication: PAIN
     Dosage: 24 MG QD ORAL
     Route: 048
     Dates: start: 20060301, end: 20060711
  5. LYRICA [Concomitant]
  6. AMBIEN [Concomitant]

REACTIONS (6)
  - AMNESIA [None]
  - APRAXIA [None]
  - CONVULSION [None]
  - FALL [None]
  - MUSCLE SPASMS [None]
  - SLEEP WALKING [None]
